FAERS Safety Report 8457755-9 (Version None)
Quarter: 2012Q2

REPORT INFORMATION
  Report Type: 
  Country: None (occurrence: None)
  Receive Date: 20120618
  Receipt Date: 20120618
  Transmission Date: 20120825
  Serious: Yes (Death)
  Sender: FDA-Public Use
  Company Number: None

PATIENT
  Sex: Male
  Weight: 108.8633 kg

DRUGS (1)
  1. TUSSIONEX [Suspect]
     Indication: BRONCHITIS
     Dosage: 2.5 TBL 1 PO
     Route: 048
     Dates: start: 20110830, end: 20110830

REACTIONS (5)
  - DRUG PRESCRIBING ERROR [None]
  - RESPIRATORY DEPRESSION [None]
  - INCORRECT DOSE ADMINISTERED [None]
  - UNRESPONSIVE TO STIMULI [None]
  - WRONG TECHNIQUE IN DRUG USAGE PROCESS [None]
